FAERS Safety Report 9887838 (Version 1)
Quarter: 2014Q1

REPORT INFORMATION
  Report Type: Spontaneous
  Country: US (occurrence: None)
  Receive Date: 20140207
  Receipt Date: 20140207
  Transmission Date: 20141002
  Serious: Yes (Hospitalization)
  Sender: FDA-Public Use
  Company Number: None

PATIENT
  Age: 53 Year
  Sex: Male
  Weight: 140.6 kg

DRUGS (1)
  1. ACETAZOLAMIDE [Suspect]
     Indication: CATARACT OPERATION
     Route: 048
     Dates: start: 20100924, end: 20101001

REACTIONS (3)
  - Stevens-Johnson syndrome [None]
  - Renal failure [None]
  - Dialysis [None]
